FAERS Safety Report 4337584-8 (Version None)
Quarter: 2004Q2

REPORT INFORMATION
  Report Type: 
  Country: None (occurrence: None)
  Receive Date: 20040412
  Receipt Date: 20040412
  Transmission Date: 20050107
  Serious: No
  Sender: FDA-Public Use
  Company Number: None

PATIENT
  Age: 77 Year
  Sex: Female
  Weight: 81.6475 kg

DRUGS (2)
  1. ATIVAN [Suspect]
     Indication: ANXIETY
     Dosage: 1 MG AT BED TIME
     Dates: start: 20031101, end: 20040101
  2. ATIVAN [Suspect]
     Indication: SOMNOLENCE
     Dosage: 1 MG AT BED TIME
     Dates: start: 20031101, end: 20040101

REACTIONS (2)
  - FALL [None]
  - URINARY INCONTINENCE [None]
